FAERS Safety Report 14968133 (Version 2)
Quarter: 2018Q3

REPORT INFORMATION
  Report Type: Spontaneous
  Country: PT (occurrence: PT)
  Receive Date: 20180604
  Receipt Date: 20180807
  Transmission Date: 20181010
  Serious: Yes (Death, Other)
  Sender: FDA-Public Use
  Company Number: PT-ACCORD-015461

PATIENT
  Age: 32 Year
  Sex: Male

DRUGS (10)
  1. NORDAZEPAM [Suspect]
     Active Substance: NORDAZEPAM
  2. DIAZEPAM. [Suspect]
     Active Substance: DIAZEPAM
  3. PAROXETINE. [Suspect]
     Active Substance: PAROXETINE
     Route: 048
  4. OLANZAPINE. [Suspect]
     Active Substance: OLANZAPINE
     Route: 048
  5. LORAZEPAM. [Suspect]
     Active Substance: LORAZEPAM
     Route: 048
  6. BROMAZEPAM [Suspect]
     Active Substance: BROMAZEPAM
     Route: 048
  7. QUETIAPINE. [Suspect]
     Active Substance: QUETIAPINE
     Route: 048
  8. RISPERIDONE. [Suspect]
     Active Substance: RISPERIDONE
  9. FLUOXETINE [Suspect]
     Active Substance: FLUOXETINE HYDROCHLORIDE
     Route: 048
  10. HALOPERIDOL. [Suspect]
     Active Substance: HALOPERIDOL
     Route: 048

REACTIONS (3)
  - Toxicity to various agents [Fatal]
  - Intentional overdose [Unknown]
  - Completed suicide [Fatal]
